FAERS Safety Report 6360315-7 (Version None)
Quarter: 2009Q3

REPORT INFORMATION
  Report Type: 
  Country: None (occurrence: None)
  Receive Date: 20090917
  Receipt Date: 20090911
  Transmission Date: 20100115
  Serious: Yes (Other)
  Sender: FDA-Public Use
  Company Number: TW-TEVA-209165ISR

PATIENT
  Age: 75 Year
  Sex: Male

DRUGS (8)
  1. VINCRISTINE [Suspect]
     Indication: ACUTE LEUKAEMIA
     Route: 042
     Dates: start: 20090831, end: 20090831
  2. CYCLOPHOSPHAMIDE [Suspect]
     Indication: LYMPHOMA
     Route: 042
     Dates: start: 20090831, end: 20090831
  3. EPIRUBICIN [Suspect]
     Indication: LYMPHOMA
     Route: 042
     Dates: start: 20090831, end: 20090831
  4. PARACETAMOL [Concomitant]
     Route: 048
     Dates: start: 20090806, end: 20090908
  5. COLCHICINE [Concomitant]
     Route: 048
     Dates: start: 20090822, end: 20090908
  6. LORAZEPAM [Concomitant]
     Route: 048
     Dates: start: 20090826, end: 20090907
  7. BETAMETHASONE [Concomitant]
     Route: 030
     Dates: start: 20090826, end: 20090831
  8. METOCLOPRAMIDE [Concomitant]
     Route: 030
     Dates: start: 20090831, end: 20090831

REACTIONS (1)
  - PANCYTOPENIA [None]
